FAERS Safety Report 11139741 (Version 1)
Quarter: 2015Q2

REPORT INFORMATION
  Report Type: Spontaneous
  Country: US (occurrence: None)
  Receive Date: 20150526
  Receipt Date: 20150526
  Transmission Date: 20150821
  Serious: No
  Sender: FDA-Public Use
  Company Number: None

PATIENT
  Age: 50 Year
  Sex: Female
  Weight: 99.79 kg

DRUGS (7)
  1. CONTRAVE [Suspect]
     Active Substance: BUPROPION HYDROCHLORIDE\NALTREXONE HYDROCHLORIDE
  2. SIMVASTATIN. [Concomitant]
     Active Substance: SIMVASTATIN
  3. VITAMIN C [Concomitant]
     Active Substance: ASCORBIC ACID
  4. FISH OIL [Concomitant]
     Active Substance: FISH OIL
  5. NEXIUM [Concomitant]
     Active Substance: ESOMEPRAZOLE MAGNESIUM
  6. SYNTHROID [Concomitant]
     Active Substance: LEVOTHYROXINE SODIUM
  7. BIOTIN CENTRUM SILVER FOR WOMEN [Concomitant]

REACTIONS (3)
  - Constipation [None]
  - Dry mouth [None]
  - Thinking abnormal [None]

NARRATIVE: CASE EVENT DATE: 20150428
